FAERS Safety Report 7930609-X (Version None)
Quarter: 2011Q4

REPORT INFORMATION
  Report Type: 
  Country: None (occurrence: None)
  Receive Date: 20111121
  Receipt Date: 20111117
  Transmission Date: 20120403
  Serious: Yes (Other)
  Sender: FDA-Public Use
  Company Number: DE-PFIZER INC-2011281601

PATIENT
  Age: 26 Year
  Sex: Male

DRUGS (1)
  1. IBUPRIN [Suspect]
     Dosage: 800 MG, UNK
     Route: 048
     Dates: start: 20110215

REACTIONS (3)
  - ABDOMINAL TENDERNESS [None]
  - DIARRHOEA [None]
  - HAEMATEMESIS [None]
